FAERS Safety Report 25740610 (Version 1)
Quarter: 2025Q3

REPORT INFORMATION
  Report Type: Spontaneous
  Country: US (occurrence: US)
  Receive Date: 20250829
  Receipt Date: 20250829
  Transmission Date: 20251021
  Serious: No
  Sender: SANOFI AVENTIS
  Company Number: US-SA-2025SA255392

PATIENT
  Sex: Male

DRUGS (9)
  1. DUPIXENT [Suspect]
     Active Substance: DUPILUMAB
     Indication: Dermatitis atopic
     Dosage: 300 MG, QOW
     Route: 058
  2. CLOBETASOL [Concomitant]
     Active Substance: CLOBETASOL
  3. Hydrocortamate [Concomitant]
  4. KETOCONAZOLE [Concomitant]
     Active Substance: KETOCONAZOLE
  5. KETOCONAZOLE [Concomitant]
     Active Substance: KETOCONAZOLE
  6. OLANZAPINE [Concomitant]
     Active Substance: OLANZAPINE
  7. Oxycodone accord [Concomitant]
  8. TACROLIMUS [Concomitant]
     Active Substance: TACROLIMUS
  9. TAMSULOSIN HYDROCHLORIDE [Concomitant]
     Active Substance: TAMSULOSIN HYDROCHLORIDE

REACTIONS (1)
  - Post-traumatic stress disorder [Not Recovered/Not Resolved]
